FAERS Safety Report 10598475 (Version 1)
Quarter: 2014Q4

REPORT INFORMATION
  Report Type: Spontaneous
  Country: GB (occurrence: None)
  Receive Date: 20141119
  Receipt Date: 20141119
  Transmission Date: 20150529
  Serious: Yes (Hospitalization, Other)
  Sender: FDA-Public Use
  Company Number: CL-591-2014

PATIENT
  Age: 40 Year
  Sex: Female

DRUGS (1)
  1. FLUCONAZOLE. [Suspect]
     Active Substance: FLUCONAZOLE
     Indication: VAGINAL INFECTION
     Route: 048

REACTIONS (8)
  - Jaundice [None]
  - Refusal of treatment by patient [None]
  - Hepatotoxicity [None]
  - Fatigue [None]
  - Nausea [None]
  - Chromaturia [None]
  - Alanine aminotransferase increased [None]
  - Aspartate aminotransferase increased [None]
